FAERS Safety Report 7053043-6 (Version None)
Quarter: 2010Q4

REPORT INFORMATION
  Report Type: 
  Country: None (occurrence: None)
  Receive Date: 20101020
  Receipt Date: 20101007
  Transmission Date: 20110411
  Serious: Yes (Other)
  Sender: FDA-Public Use
  Company Number: US-ELI_LILLY_AND_COMPANY-US201008004503

PATIENT
  Age: 85 Year
  Sex: Male

DRUGS (3)
  1. HUMULIN N [Suspect]
  2. HUMALOG [Suspect]
     Indication: DIABETES MELLITUS
     Dosage: UNK, UNK
     Dates: start: 20050301
  3. LANTUS [Concomitant]

REACTIONS (3)
  - AGITATION [None]
  - HYPOACUSIS [None]
  - MYOCARDIAL INFARCTION [None]
